FAERS Safety Report 10417677 (Version 2)
Quarter: 2014Q3

REPORT INFORMATION
  Report Type: Report from Study
  Country: US (occurrence: US)
  Receive Date: 20140829
  Receipt Date: 20140903
  Transmission Date: 20150326
  Serious: Yes (Hospitalization, Other)
  Sender: FDA-Public Use
  Company Number: PHEH2014US016934

PATIENT
  Sex: Male
  Weight: 63 kg

DRUGS (10)
  1. TOBI [Suspect]
     Active Substance: TOBRAMYCIN
     Dosage: UNK
  2. FLOMAX//MORNIFLUMATE [Concomitant]
     Dosage: UKN
  3. PULMOZYME [Concomitant]
     Active Substance: DORNASE ALFA
     Dosage: UKN
  4. ZYRTEC [Concomitant]
     Active Substance: CETIRIZINE HYDROCHLORIDE
     Dosage: UKN
  5. CIPROHEPTADINA [Concomitant]
     Dosage: UKN
  6. TOBI [Suspect]
     Active Substance: TOBRAMYCIN
     Indication: CYSTIC FIBROSIS
     Dosage: 300 MG PER 5 ML, BID
     Route: 055
     Dates: end: 201310
  7. PROZAC [Concomitant]
     Active Substance: FLUOXETINE HYDROCHLORIDE
     Dosage: UKN
  8. AZITHROMYCIN [Concomitant]
     Active Substance: AZITHROMYCIN ANHYDROUS
     Dosage: UKN
  9. VENTOLINE [Concomitant]
     Active Substance: ALBUTEROL
     Dosage: UKN
  10. HYPERTONIC SALINE SOLUTION [Concomitant]
     Active Substance: SODIUM CHLORIDE
     Dosage: UKN

REACTIONS (3)
  - Cystic fibrosis [Recovering/Resolving]
  - Pseudomonas infection [Recovering/Resolving]
  - Condition aggravated [Recovering/Resolving]

NARRATIVE: CASE EVENT DATE: 2013
